FAERS Safety Report 10446832 (Version 3)
Quarter: 2014Q4

REPORT INFORMATION
  Report Type: Spontaneous
  Country: JP (occurrence: JP)
  Receive Date: 20140911
  Receipt Date: 20141003
  Transmission Date: 20150528
  Serious: Yes (Other)
  Sender: FDA-Public Use
  Company Number: JP-TAKEDA-2014TEU001613

PATIENT
  Age: 72 Year
  Sex: Male

DRUGS (10)
  1. TACHOSIL [Suspect]
     Active Substance: FIBRINOGEN HUMAN\THROMBIN HUMAN
     Indication: PROPHYLAXIS
     Dosage: 1SHEET /1DAY
     Route: 065
     Dates: start: 20130730
  2. NEXIUM [Concomitant]
     Active Substance: ESOMEPRAZOLE MAGNESIUM
     Indication: BLADDER CANCER
     Dosage: 20 MG, QD
     Dates: start: 20130731
  3. PLASMA, FRESH FROZEN [Concomitant]
     Active Substance: HUMAN PLASMA
  4. RED BLOOD CELLS, CONCENTRATED [Concomitant]
     Active Substance: HUMAN RED BLOOD CELL
  5. PACETCOOL [Concomitant]
     Active Substance: CEFOTIAM HYDROCHLORIDE
     Indication: BLADDER CANCER
     Dosage: 1 G, BID
     Dates: start: 20130730, end: 20130730
  6. CALONAL [Concomitant]
     Active Substance: ACETAMINOPHEN
     Indication: BLADDER CANCER
     Dosage: 200 MG, TID
     Dates: start: 20130731, end: 20130816
  7. TACHOSIL [Suspect]
     Active Substance: FIBRINOGEN HUMAN\THROMBIN HUMAN
     Indication: PROPHYLAXIS
  8. OMEPRAZOLE. [Concomitant]
     Active Substance: OMEPRAZOLE
     Indication: BLADDER CANCER
     Dosage: 20 MG, QD
     Dates: start: 20130730, end: 20130730
  9. MAGLAX [Concomitant]
     Active Substance: MAGNESIUM OXIDE
     Indication: BLADDER CANCER
     Dosage: 200 MG, TID
     Dates: start: 20130731
  10. FUROSEMIDE. [Concomitant]
     Active Substance: FUROSEMIDE
     Indication: BLADDER CANCER
     Dosage: 20 MG, QD
     Dates: start: 20130804, end: 20130806

REACTIONS (2)
  - Intestinal obstruction [Recovered/Resolved]
  - Perineal abscess [Recovered/Resolved]

NARRATIVE: CASE EVENT DATE: 20130802
